FAERS Safety Report 8583984 (Version 9)
Quarter: 2013Q3

REPORT INFORMATION
  Report Type: Report from Study
  Country: IT (occurrence: IT)
  Receive Date: 20120529
  Receipt Date: 20130814
  Transmission Date: 20140515
  Serious: Yes (Hospitalization, Other)
  Sender: FDA-Public Use
  Company Number: IT-ROCHE-1043768

PATIENT
  Age: 48 Year
  Sex: Female
  Weight: 85 kg

DRUGS (4)
  1. VEMURAFENIB [Suspect]
     Indication: MALIGNANT MELANOMA
     Dosage: LAST DOSE PRIOR TO SAE ON 12/MAR/2012
     Route: 048
     Dates: start: 20120118, end: 20120221
  2. VEMURAFENIB [Suspect]
     Route: 048
     Dates: start: 20120312, end: 20120411
  3. VEMURAFENIB [Suspect]
     Route: 048
     Dates: start: 20120418, end: 20120509
  4. VEMURAFENIB [Suspect]
     Route: 048
     Dates: start: 20120518

REACTIONS (3)
  - Toxicity to various agents [Recovered/Resolved]
  - Gastroenteritis [Recovered/Resolved]
  - Diarrhoea [Not Recovered/Not Resolved]
